FAERS Safety Report 6870753-1 (Version None)
Quarter: 2010Q3

REPORT INFORMATION
  Report Type: 
  Country: None (occurrence: None)
  Receive Date: 20100723
  Receipt Date: 20100719
  Transmission Date: 20110219
  Serious: Yes (Death, Other)
  Sender: FDA-Public Use
  Company Number: PHHY2010FR47356

PATIENT
  Age: 79 Year
  Sex: Male

DRUGS (6)
  1. RASILEZ [Suspect]
     Indication: HYPERTENSION
     Dosage: 300 MG, UNK
     Dates: start: 20100301, end: 20100701
  2. RASILEZ HCT [Suspect]
     Indication: HYPERTENSION
     Dosage: 300/25 MG
     Dates: start: 20100701
  3. LASIX [Concomitant]
     Indication: HYPERTENSION
     Dosage: 60 MG, UNK
  4. HYPERIUM [Concomitant]
     Indication: HYPERTENSION
  5. LERCANIDIPINE [Concomitant]
     Indication: HYPERTENSION
  6. CALCIUM CHANNEL BLOCKERS [Concomitant]
     Indication: HYPERTENSION

REACTIONS (4)
  - CARDIAC DISORDER [None]
  - HYPERKALAEMIA [None]
  - HYPERTENSION [None]
  - SUDDEN DEATH [None]
